FAERS Safety Report 4366451-9 (Version None)
Quarter: 2004Q2

REPORT INFORMATION
  Report Type: 
  Country: None (occurrence: None)
  Receive Date: 20040527
  Receipt Date: 20040405
  Transmission Date: 20050107
  Serious: No
  Sender: FDA-Public Use
  Company Number: US-BRISTOL-MYERS SQUIBB COMPANY-12551222

PATIENT
  Age: 57 Year
  Sex: Male
  Weight: 99 kg

DRUGS (10)
  1. ERBITUX [Suspect]
     Indication: COLON CANCER METASTATIC
     Dosage: 1ST INFUSION, 2ND INFUSION 29-MAR-04 (530 MG IV)
     Route: 042
     Dates: start: 20040322, end: 20040322
  2. ZOFRAN [Concomitant]
  3. FLUOROURACIL [Concomitant]
  4. LEUCOVORIN CALCIUM [Concomitant]
  5. CAMPTOSAR [Concomitant]
  6. ANZEMET [Concomitant]
  7. DECADRON [Concomitant]
  8. BENADRYL [Concomitant]
  9. TYLENOL [Concomitant]
  10. ATROPINE [Concomitant]

REACTIONS (1)
  - DERMATITIS ACNEIFORM [None]
